FAERS Safety Report 6221163-1 (Version None)
Quarter: 2009Q2

REPORT INFORMATION
  Report Type: 
  Country: None (occurrence: None)
  Receive Date: 20090608
  Receipt Date: 20090525
  Transmission Date: 20091009
  Serious: Yes (Death, Hospitalization)
  Sender: FDA-Public Use
  Company Number: 1000005637

PATIENT
  Age: 77 Year
  Sex: Male
  Weight: 74 kg

DRUGS (5)
  1. CITALOPRAM HYDROBROMIDE [Suspect]
     Indication: RESTLESSNESS
     Dosage: 20 MG (20 MG, 1 IN 1 D), ORAL
     Route: 048
     Dates: start: 20090319, end: 20090322
  2. ANTICHOLINERGICS [Concomitant]
  3. SYMPATHOMIMETICS [Concomitant]
  4. BRONCHODILATORS [Concomitant]
  5. STEROIDS [Concomitant]

REACTIONS (5)
  - BRONCHOPNEUMONIA [None]
  - CHRONIC OBSTRUCTIVE PULMONARY DISEASE [None]
  - CONDITION AGGRAVATED [None]
  - GENERAL PHYSICAL HEALTH DETERIORATION [None]
  - HEPATITIS [None]
